FAERS Safety Report 8927830 (Version 1)
Quarter: 2012Q4

REPORT INFORMATION
  Report Type: Report from Study
  Country: JP (occurrence: JP)
  Receive Date: 20121127
  Receipt Date: 20121127
  Transmission Date: 20130627
  Serious: Yes (Hospitalization, Other)
  Sender: FDA-Public Use
  Company Number: JP-VERTEX PHARMACEUTICAL INC.-AE-2012-004053

PATIENT
  Age: 77 Year
  Sex: Female

DRUGS (19)
  1. VX-950 (TELAPREVIR) [Suspect]
     Indication: CHRONIC HEPATITIS C
     Dosage: 2250 mg, qd
     Route: 048
     Dates: start: 20120127, end: 20120202
  2. VX-950 (TELAPREVIR) [Suspect]
     Dosage: 1500 mg, qd
     Route: 048
     Dates: start: 20120203, end: 20120223
  3. VX-950 (TELAPREVIR) [Suspect]
     Dosage: 750 mg, qd
     Route: 048
     Dates: start: 20120405, end: 20120419
  4. PEGINTRON                          /01543001/ [Suspect]
     Indication: CHRONIC HEPATITIS C
     Dosage: 1.3 ?g/kg, qw
     Route: 058
     Dates: start: 20120127, end: 20120209
  5. PEGINTRON                          /01543001/ [Suspect]
     Dosage: 0.96 ?g/kg, qw
     Route: 058
     Dates: start: 20120216, end: 20120216
  6. PEGINTRON                          /01543001/ [Suspect]
     Dosage: 0.32 ?g/kg, qw
     Route: 058
     Dates: start: 20120223
  7. PEGINTRON                          /01543001/ [Suspect]
     Dosage: 0.3 ?g/kg, qw
     Route: 058
     Dates: end: 20120315
  8. PEGINTRON                          /01543001/ [Suspect]
     Dosage: 0.6 ?g/kg, qw
     Route: 058
     Dates: start: 20120322, end: 20120329
  9. PEGINTRON                          /01543001/ [Suspect]
     Dosage: 0.8 ?g/kg, qw
     Route: 058
     Dates: start: 20120405, end: 20120426
  10. PEGINTRON                          /01543001/ [Suspect]
     Dosage: 0.6 ?g/kg, qw
     Route: 058
     Dates: start: 20120510, end: 20120510
  11. REBETOL [Suspect]
     Indication: CHRONIC HEPATITIS C
     Dosage: 600 mg, qd
     Route: 048
     Dates: start: 20120127, end: 20120202
  12. REBETOL [Suspect]
     Dosage: 400 mg, qd
     Route: 048
     Dates: start: 20120203, end: 20120216
  13. REBETOL [Suspect]
     Dosage: 200 mg, qd
     Route: 048
     Dates: start: 20120217, end: 20120223
  14. REBETOL [Suspect]
     Dosage: 200 mg, qd
     Route: 048
     Dates: end: 20120531
  15. DEPAS [Suspect]
     Indication: ADVERSE EVENT
     Dosage: 1 DF, qd
     Route: 048
  16. DEPAS [Suspect]
     Dosage: 2 DF, qd
     Route: 048
     Dates: start: 20120510, end: 20120524
  17. DEPAS [Suspect]
     Dosage: 1 DF, qd
     Route: 048
     Dates: start: 20120524
  18. URSO                               /00465701/ [Concomitant]
     Dosage: 6 DF, qd
     Route: 048
  19. STEROID [Concomitant]

REACTIONS (2)
  - Presyncope [Recovered/Resolved]
  - Decreased appetite [Not Recovered/Not Resolved]
